FAERS Safety Report 14243499 (Version 5)
Quarter: 2018Q1

REPORT INFORMATION
  Report Type: Spontaneous
  Country: JP (occurrence: JP)
  Receive Date: 20171201
  Receipt Date: 20180216
  Transmission Date: 20180508
  Serious: Yes (Death)
  Sender: FDA-Public Use
  Company Number: JP-CELGENEUS-JPN-20171109484

PATIENT
  Age: 1 Year
  Sex: Female
  Weight: 8 kg

DRUGS (4)
  1. NEXAVAR [Concomitant]
     Active Substance: SORAFENIB
     Indication: ACUTE MEGAKARYOCYTIC LEUKAEMIA
     Route: 048
  2. VIDAZA [Suspect]
     Active Substance: AZACITIDINE
     Indication: MYELODYSPLASTIC SYNDROME
     Dosage: 20 MILLIGRAM
     Route: 041
     Dates: start: 20170301, end: 20170307
  3. NEXAVAR [Concomitant]
     Active Substance: SORAFENIB
     Indication: MYELODYSPLASTIC SYNDROME
     Dosage: 50 MILLIGRAM
     Route: 048
     Dates: start: 20170301, end: 20170311
  4. VIDAZA [Suspect]
     Active Substance: AZACITIDINE
     Indication: ACUTE MEGAKARYOCYTIC LEUKAEMIA
     Dosage: 75 MILLIGRAM/SQ. METER
     Route: 042

REACTIONS (1)
  - Erythroleukaemia [Fatal]

NARRATIVE: CASE EVENT DATE: 20170313
